FAERS Safety Report 8091346-7 (Version None)
Quarter: 2012Q1

REPORT INFORMATION
  Report Type: 
  Country: None (occurrence: None)
  Receive Date: 20120131
  Receipt Date: 20120118
  Transmission Date: 20120608
  Serious: Yes (Hospitalization)
  Sender: FDA-Public Use
  Company Number: US-ELI_LILLY_AND_COMPANY-US201201006085

PATIENT
  Age: 84 Year
  Sex: Female

DRUGS (12)
  1. SYNTHROID [Concomitant]
  2. CYMBALTA [Suspect]
     Indication: DEPRESSION
     Dosage: 30 MG, UNKNOWN
     Dates: start: 20110701, end: 20110901
  3. XALATAN [Concomitant]
  4. NITRO-DUR [Concomitant]
  5. CYMBALTA [Suspect]
     Dosage: 30 MG, UNKNOWN
     Dates: start: 20111201
  6. LISINOPRIL [Concomitant]
  7. TRAMADOL HCL [Concomitant]
     Indication: PAIN
  8. TYLENOL                                 /SCH/ [Concomitant]
  9. FLUTICASONE PROPIONATE [Concomitant]
  10. FOLIC ACID [Concomitant]
  11. ZYPREXA [Suspect]
     Indication: DEMENTIA
     Dosage: UNK UNK, UNKNOWN
     Dates: start: 20110701, end: 20110801
  12. METHOTREXATE [Concomitant]

REACTIONS (24)
  - BLADDER DYSFUNCTION [None]
  - AGITATION [None]
  - MONOPARESIS [None]
  - PAIN IN EXTREMITY [None]
  - NECK PAIN [None]
  - GRIMACING [None]
  - HYPERHIDROSIS [None]
  - PAIN [None]
  - ERYTHEMA [None]
  - PARKINSON'S DISEASE [None]
  - SPEECH DISORDER [None]
  - MULTIPLE SYSTEM ATROPHY [None]
  - DELIRIUM [None]
  - DRUG INEFFECTIVE [None]
  - ARTHRALGIA [None]
  - BACK PAIN [None]
  - DEMENTIA [None]
  - URINARY TRACT INFECTION [None]
  - OFF LABEL USE [None]
  - HALLUCINATION [None]
  - HOSPITALISATION [None]
  - NERVOUS SYSTEM DISORDER [None]
  - DYSPHAGIA [None]
  - URINE OUTPUT DECREASED [None]
